FAERS Safety Report 12271201 (Version 1)
Quarter: 2016Q2

REPORT INFORMATION
  Report Type: Spontaneous
  Country: RO (occurrence: RO)
  Receive Date: 20160415
  Receipt Date: 20160415
  Transmission Date: 20160815
  Serious: Yes (Other)
  Sender: FDA-Public Use
  Company Number: RO-SUN PHARMACEUTICAL INDUSTRIES LTD-2016RR-114940

PATIENT
  Sex: Female

DRUGS (3)
  1. LEVETIRACETAM. [Suspect]
     Active Substance: LEVETIRACETAM
     Indication: RASMUSSEN ENCEPHALITIS
     Dosage: 1000 MG, DAILY
     Route: 042
  2. VALPROATE DE SODIUM [Suspect]
     Active Substance: VALPROATE SODIUM
     Indication: RASMUSSEN ENCEPHALITIS
     Dosage: 1000 MG, DAILY
     Route: 065
     Dates: start: 201411
  3. VALPROATE DE SODIUM [Suspect]
     Active Substance: VALPROATE SODIUM
     Indication: IDIOPATHIC GENERALISED EPILEPSY
     Dosage: 1000 MG, DAILY
     Route: 065

REACTIONS (2)
  - Drug ineffective [Recovering/Resolving]
  - Drug resistance [Recovering/Resolving]
